FAERS Safety Report 17035495 (Version 3)
Quarter: 2019Q4

REPORT INFORMATION
  Report Type: Spontaneous
  Country: HU (occurrence: HU)
  Receive Date: 20191115
  Receipt Date: 20191122
  Transmission Date: 20200122
  Serious: Yes (Hospitalization, Other)
  Sender: FDA-Public Use
  Company Number: NVSC2019HU035045

PATIENT
  Age: 20 Year
  Sex: Female

DRUGS (1)
  1. PARACETAMOL [Suspect]
     Active Substance: ACETAMINOPHEN
     Indication: PAIN
     Dosage: UNK
     Route: 065

REACTIONS (7)
  - Vomiting [Recovered/Resolved]
  - Acute hepatic failure [Recovered/Resolved]
  - Nausea [Recovered/Resolved]
  - Accidental poisoning [Recovered/Resolved]
  - Overdose [Recovered/Resolved]
  - Abdominal pain upper [Recovered/Resolved]
  - Coagulopathy [Recovered/Resolved]
